FAERS Safety Report 10769890 (Version 1)
Quarter: 2015Q1

REPORT INFORMATION
  Report Type: Spontaneous
  Country: US (occurrence: US)
  Receive Date: 20150206
  Receipt Date: 20150206
  Transmission Date: 20150721
  Serious: No
  Sender: FDA-Public Use
  Company Number: US-009507513-1501USA009950

PATIENT
  Sex: Female
  Weight: 90.7 kg

DRUGS (1)
  1. NEXPLANON [Suspect]
     Active Substance: ETONOGESTREL
     Indication: CONTRACEPTION
     Dosage: 1 ROD THREE YEARS
     Route: 059
     Dates: start: 20141106

REACTIONS (5)
  - Device kink [Not Recovered/Not Resolved]
  - Product quality issue [Unknown]
  - Implant site irritation [Unknown]
  - Implant site bruising [Unknown]
  - Device expulsion [Not Recovered/Not Resolved]
